FAERS Safety Report 16456849 (Version 1)
Quarter: 2019Q2

REPORT INFORMATION
  Report Type: Spontaneous
  Country: PL (occurrence: PL)
  Receive Date: 20190620
  Receipt Date: 20190620
  Transmission Date: 20190711
  Serious: Yes (Other)
  Sender: FDA-Public Use
  Company Number: PL-MACLEODS PHARMACEUTICALS US LTD-MAC2019021761

PATIENT

DRUGS (1)
  1. QUETIAPINE. [Suspect]
     Active Substance: QUETIAPINE
     Indication: PSYCHOTIC DISORDER
     Dosage: 50 MILLIGRAM, QD, AT NIGHT
     Route: 065

REACTIONS (3)
  - Aphasia [Recovered/Resolved]
  - Extrapyramidal disorder [Recovered/Resolved]
  - Speech disorder [Recovered/Resolved]
